FAERS Safety Report 21264565 (Version 1)
Quarter: 2022Q3

REPORT INFORMATION
  Report Type: Spontaneous
  Country: CN (occurrence: None)
  Receive Date: 20220829
  Receipt Date: 20220829
  Transmission Date: 20221027
  Serious: Yes (Hospitalization, Disabling)
  Sender: FDA-Public Use
  Company Number: CN-ROCHE-3168514

PATIENT
  Age: 60 Year
  Sex: Male
  Weight: 65 kg

DRUGS (5)
  1. AVASTIN [Suspect]
     Active Substance: BEVACIZUMAB
     Indication: Lung neoplasm malignant
     Route: 041
     Dates: start: 20220705, end: 20220705
  2. CARBOPLATIN [Suspect]
     Active Substance: CARBOPLATIN
     Indication: Lung neoplasm malignant
     Route: 041
     Dates: start: 20220705, end: 20220705
  3. PEMETREXED DISODIUM [Suspect]
     Active Substance: PEMETREXED DISODIUM
     Indication: Lung neoplasm malignant
     Route: 041
     Dates: start: 20220705, end: 20220705
  4. IRINOTECAN HYDROCHLORIDE [Suspect]
     Active Substance: IRINOTECAN HYDROCHLORIDE
     Indication: Lung neoplasm malignant
     Route: 041
     Dates: start: 20220708, end: 20220708
  5. ALIMTA [Concomitant]
     Active Substance: PEMETREXED DISODIUM

REACTIONS (1)
  - Hepatic function abnormal [Recovering/Resolving]

NARRATIVE: CASE EVENT DATE: 20220805
